FAERS Safety Report 20230745 (Version 9)
Quarter: 2022Q2

REPORT INFORMATION
  Report Type: Report from Study
  Country: CA (occurrence: CA)
  Receive Date: 20211227
  Receipt Date: 20220413
  Transmission Date: 20220721
  Serious: Yes (Hospitalization, Other)
  Sender: FDA-Public Use
  Company Number: CA-BAUSCH-BL-2021-042237

PATIENT
  Age: 69 Year
  Sex: Male

DRUGS (4)
  1. SILIQ [Suspect]
     Active Substance: BRODALUMAB
     Indication: Psoriasis
     Dosage: 210MG/ 1.5 ML, WEEKLY, WEEK 0, 1, 2
     Route: 058
     Dates: start: 20211201, end: 20211215
  2. SILIQ [Suspect]
     Active Substance: BRODALUMAB
     Dosage: 210MG/ 1.5 ML, Q 2 WEEKS
     Route: 058
  3. SILIQ [Suspect]
     Active Substance: BRODALUMAB
     Dosage: 210MG/ 1.5 ML, Q 2 WEEKS
     Route: 058
     Dates: start: 20220216
  4. SILIQ [Suspect]
     Active Substance: BRODALUMAB
     Dosage: 210MG/ 1.5 ML, Q 2 WEEKS
     Route: 058
     Dates: start: 20220310, end: 20220323

REACTIONS (11)
  - Infarction [Recovered/Resolved]
  - Weight decreased [Unknown]
  - Pain in extremity [Not Recovered/Not Resolved]
  - Blood potassium decreased [Unknown]
  - Blood magnesium decreased [Unknown]
  - Psoriasis [Not Recovered/Not Resolved]
  - Dry skin [Unknown]
  - Papule [Not Recovered/Not Resolved]
  - COVID-19 [Unknown]
  - Patient dissatisfaction with treatment [Unknown]
  - Product dose omission issue [Unknown]

NARRATIVE: CASE EVENT DATE: 20211201
